FAERS Safety Report 22326505 (Version 1)
Quarter: 2023Q2

REPORT INFORMATION
  Report Type: Spontaneous
  Country: CN (occurrence: CN)
  Receive Date: 20230516
  Receipt Date: 20230516
  Transmission Date: 20230722
  Serious: Yes (Other)
  Sender: FDA-Public Use
  Company Number: CN-BoehringerIngelheim-2023-BI-237559

PATIENT
  Age: 70 Year
  Sex: Female
  Weight: 108.0 kg

DRUGS (2)
  1. LINAGLIPTIN [Suspect]
     Active Substance: LINAGLIPTIN
     Indication: Diabetes mellitus
     Route: 048
     Dates: start: 20230507, end: 20230510
  2. Fu Fang Dan Shen Di Wan [Concomitant]
     Indication: Hypertension
     Dosage: PILL
     Route: 048
     Dates: start: 20230507, end: 20230510

REACTIONS (3)
  - Paralysis [Not Recovered/Not Resolved]
  - Hypoaesthesia [Unknown]
  - Hyperhidrosis [Unknown]

NARRATIVE: CASE EVENT DATE: 20230507
